FAERS Safety Report 6749527-8 (Version None)
Quarter: 2010Q2

REPORT INFORMATION
  Report Type: 
  Country: None (occurrence: None)
  Receive Date: 20100527
  Receipt Date: 20100527
  Transmission Date: 20101027
  Serious: Yes (Hospitalization, Disabling)
  Sender: FDA-Public Use
  Company Number: None

PATIENT
  Age: 64 Year
  Sex: Female
  Weight: 58.9676 kg

DRUGS (2)
  1. RIFAMPIN [Suspect]
     Indication: STAPHYLOCOCCAL INFECTION
     Dosage: 300 MG 3 PER DAY ORAL
     Route: 048
     Dates: start: 20080501, end: 20081101
  2. SULFAMETHOXAZOLE [Suspect]
     Indication: SINUSITIS
     Dosage: #60 2 PER DAY ORAL
     Route: 048
     Dates: start: 20080501, end: 20081101

REACTIONS (1)
  - BLINDNESS [None]
